FAERS Safety Report 5073626-2 (Version None)
Quarter: 2006Q3

REPORT INFORMATION
  Report Type: 
  Country: None (occurrence: None)
  Receive Date: 20060803
  Receipt Date: 20060724
  Transmission Date: 20061208
  Serious: Yes (Death, Hospitalization)
  Sender: FDA-Public Use
  Company Number: 2006BH012128

PATIENT
  Sex: Female

DRUGS (2)
  1. EXTRANEAL [Suspect]
     Indication: DIALYSIS
     Dosage: IP
     Route: 033
  2. DIANEAL [Suspect]
     Indication: DIALYSIS
     Dosage: IP
     Route: 033

REACTIONS (4)
  - ASPIRATION [None]
  - FLUID OVERLOAD [None]
  - NAUSEA [None]
  - VOMITING [None]
